FAERS Safety Report 4407131-0 (Version None)
Quarter: 2004Q3

REPORT INFORMATION
  Report Type: 
  Country: None (occurrence: None)
  Receive Date: 20040721
  Receipt Date: 20040709
  Transmission Date: 20050211
  Serious: Yes (Other)
  Sender: FDA-Public Use
  Company Number: US-JNJFOC-20040702853

PATIENT
  Age: 54 Year
  Sex: Female

DRUGS (11)
  1. INFLIXIMAB (INFLIXIMAB, RECOMBINANT) LYOPHILIZED POWDER [Suspect]
     Indication: RHEUMATOID ARTHRITIS
     Dosage: INTRAVENOUS
     Route: 042
     Dates: start: 20011004, end: 20020301
  2. DURAGESIC [Concomitant]
  3. PREDNISONE [Concomitant]
  4. ULTRACET (TABLETS) TRAMADOL/APAP [Concomitant]
  5. SYNTHROID [Concomitant]
  6. ENBREL [Concomitant]
  7. LIDODERM (LIDOCAINE) PATCH [Concomitant]
  8. DIFLUCAN [Concomitant]
  9. IRON SUPPLEMENT (IRON) [Concomitant]
  10. CALCIUM (CALCIUM) TABLETS [Concomitant]
  11. VITAMIN C (ASCORBIC ACID) [Concomitant]

REACTIONS (1)
  - SQUAMOUS CELL CARCINOMA [None]
